FAERS Safety Report 18184102 (Version 1)
Quarter: 2020Q3

REPORT INFORMATION
  Report Type: Report from Study
  Country: None (occurrence: CA)
  Receive Date: 20200823
  Receipt Date: 20200823
  Transmission Date: 20201103
  Serious: Yes (Other)
  Sender: FDA-Public Use
  Company Number: CA-ABBVIE-20K-028-3533572-00

PATIENT
  Age: 83 Year
  Sex: Male

DRUGS (2)
  1. HUMIRA [Suspect]
     Active Substance: ADALIMUMAB
     Route: 058
     Dates: start: 2020
  2. HUMIRA [Suspect]
     Active Substance: ADALIMUMAB
     Indication: CROHN^S DISEASE
     Route: 058
     Dates: start: 20191001, end: 2020

REACTIONS (3)
  - Gastrointestinal stoma complication [Recovering/Resolving]
  - Muscle spasms [Recovering/Resolving]
  - Faecal calprotectin increased [Recovering/Resolving]

NARRATIVE: CASE EVENT DATE: 20200608
